FAERS Safety Report 15409268 (Version 1)
Quarter: 2018Q3

REPORT INFORMATION
  Report Type: Other
  Country: US (occurrence: US)
  Receive Date: 20180920
  Receipt Date: 20180920
  Transmission Date: 20181010
  Serious: No
  Sender: FDA-Public Use
  Company Number: US-LEADIANT BIOSCIENCES INC-2018STPI000324

PATIENT
  Sex: Male

DRUGS (1)
  1. MATULANE [Suspect]
     Active Substance: PROCARBAZINE HYDROCHLORIDE
     Indication: BRAIN NEOPLASM MALIGNANT
     Dosage: 100 MG QOD ALTERNATING WITH 150 MG TIMES 2 WEEKS, EVERY 6?WEEK CYCLE
     Route: 048
     Dates: start: 20180309

REACTIONS (1)
  - Blood count abnormal [Not Recovered/Not Resolved]
